FAERS Safety Report 5289202-2 (Version None)
Quarter: 2007Q1

REPORT INFORMATION
  Report Type: 
  Country: None (occurrence: None)
  Receive Date: 20070124
  Receipt Date: 20060315
  Transmission Date: 20070707
  Serious: Yes (Hospitalization)
  Sender: FDA-Public Use
  Company Number: A001-002-006809

PATIENT
  Sex: Female

DRUGS (3)
  1. ARICEPT [Suspect]
     Dosage: SEE IMAGE
     Route: 048
     Dates: end: 20060101
  2. ARICEPT [Suspect]
     Dosage: SEE IMAGE
     Route: 048
     Dates: start: 20060101, end: 20060301
  3. ARICEPT [Suspect]
     Dosage: SEE IMAGE
     Route: 048
     Dates: start: 20060301

REACTIONS (1)
  - GASTROINTESTINAL HAEMORRHAGE [None]
